FAERS Safety Report 14242972 (Version 1)
Quarter: 2017Q4

REPORT INFORMATION
  Report Type: Spontaneous
  Country: US (occurrence: None)
  Receive Date: 20171201
  Receipt Date: 20171201
  Transmission Date: 20180321
  Serious: Yes (Disabling)
  Sender: FDA-Public Use
  Company Number: None

PATIENT
  Age: 76 Year
  Sex: Female
  Weight: 79.38 kg

DRUGS (15)
  1. PROLIA [Suspect]
     Active Substance: DENOSUMAB
     Indication: OSTEOPENIA
     Dosage: EVERY 6 MONTHS SUBQ. INJECTION
     Route: 058
     Dates: start: 201507, end: 201707
  2. CYMBALTA [Concomitant]
     Active Substance: DULOXETINE HYDROCHLORIDE
  3. PANTOPRAZOLE [Concomitant]
     Active Substance: PANTOPRAZOLE
  4. MULTI VI FOR SENIOR [Concomitant]
  5. VITAMIN D [Concomitant]
     Active Substance: CHOLECALCIFEROL
  6. CRESTOR [Concomitant]
     Active Substance: ROSUVASTATIN CALCIUM
  7. COLACE [Concomitant]
     Active Substance: DOCUSATE SODIUM
  8. DITROPAN XL [Concomitant]
     Active Substance: OXYBUTYNIN CHLORIDE
  9. METOPROLOL ER [Concomitant]
     Active Substance: METOPROLOL SUCCINATE
  10. BENAFIBER [Concomitant]
  11. RESTASIS [Concomitant]
     Active Substance: CYCLOSPORINE
  12. PROLIA [Suspect]
     Active Substance: DENOSUMAB
     Indication: OSTEOPOROSIS
     Dosage: EVERY 6 MONTHS SUBQ. INJECTION
     Route: 058
     Dates: start: 201507, end: 201707
  13. CELECOXIB. [Concomitant]
     Active Substance: CELECOXIB
  14. PILOCARPINE. [Concomitant]
     Active Substance: PILOCARPINE
  15. CALCIUM W D [Concomitant]

REACTIONS (8)
  - Myalgia [None]
  - Back pain [None]
  - Fatigue [None]
  - Skin disorder [None]
  - Muscle spasms [None]
  - Gait disturbance [None]
  - Muscle fatigue [None]
  - Muscular weakness [None]

NARRATIVE: CASE EVENT DATE: 201707
